FAERS Safety Report 14624513 (Version 1)
Quarter: 2018Q1

REPORT INFORMATION
  Report Type: Spontaneous
  Country: US (occurrence: US)
  Receive Date: 20180310
  Receipt Date: 20180310
  Transmission Date: 20180509
  Serious: Yes (Disabling)
  Sender: FDA-Public Use
  Company Number: None

PATIENT
  Age: 62 Year
  Sex: Male
  Weight: 115.2 kg

DRUGS (1)
  1. LEVOFLAXIN 500 MG [Suspect]
     Active Substance: LEVOFLOXACIN
     Indication: BRONCHITIS
     Dosage: ?          QUANTITY:10 TABLET(S);?
     Route: 048
     Dates: start: 20171013, end: 20171024

REACTIONS (7)
  - Hypoaesthesia [None]
  - Fall [None]
  - Gait disturbance [None]
  - Tendon disorder [None]
  - Quality of life decreased [None]
  - Balance disorder [None]
  - Loss of employment [None]

NARRATIVE: CASE EVENT DATE: 20171018
